FAERS Safety Report 7970011-8 (Version None)
Quarter: 2011Q4

REPORT INFORMATION
  Report Type: 
  Country: None (occurrence: None)
  Receive Date: 20111122
  Receipt Date: 20110705
  Transmission Date: 20120403
  Serious: No
  Sender: FDA-Public Use
  Company Number: PHHY2011US46936

PATIENT
  Age: 53 Year
  Sex: Male
  Weight: 98 kg

DRUGS (3)
  1. LIPITOR [Concomitant]
  2. GILENYA [Suspect]
     Indication: MULTIPLE SCLEROSIS
     Dosage: 0.5 MG, QD, ORAL
     Route: 048
     Dates: start: 20101212
  3. OMEPRAZOLE [Concomitant]

REACTIONS (5)
  - PRESYNCOPE [None]
  - VERTIGO [None]
  - DIZZINESS [None]
  - BLOOD GLUCOSE ABNORMAL [None]
  - HYPERTHERMIA [None]
